FAERS Safety Report 8664446 (Version 2)
Quarter: 2012Q4

REPORT INFORMATION
  Report Type: Report from Study
  Country: US (occurrence: US)
  Receive Date: 20120713
  Receipt Date: 20120918
  Transmission Date: 20130627
  Serious: Yes (Hospitalization, Other)
  Sender: FDA-Public Use
  Company Number: US-ABBOTT-12P-163-0953716-00

PATIENT
  Age: 43 None
  Sex: Female
  Weight: 72.64 kg

DRUGS (13)
  1. HUMIRA 40 MG/0.8 ML PEN [Suspect]
     Indication: CROHN^S DISEASE
     Dates: start: 2010, end: 201107
  2. HUMIRA 40 MG/0.8 ML PEN [Suspect]
     Dates: start: 201203, end: 201204
  3. HUMIRA 40 MG/0.8 ML PEN [Suspect]
     Dates: start: 201208
  4. REQUIP [Concomitant]
     Indication: RESTLESS LEGS SYNDROME
  5. POTASSIUM [Concomitant]
     Indication: BLOOD POTASSIUM DECREASED
  6. POTASSIUM [Concomitant]
     Indication: MINERAL SUPPLEMENTATION
  7. CLONAZEPAM [Concomitant]
     Indication: RESTLESS LEGS SYNDROME
  8. CLONAZEPAM [Concomitant]
     Indication: PAIN IN EXTREMITY
  9. AMBIEN [Concomitant]
     Indication: SLEEP DISORDER
  10. AMBIEN [Concomitant]
     Indication: INSOMNIA
  11. METOPROLOL [Concomitant]
     Indication: TACHYCARDIA
  12. METOPROLOL [Concomitant]
     Indication: HEART RATE
  13. PREVACID [Concomitant]
     Indication: PRODUCT USED FOR UNKNOWN INDICATION

REACTIONS (7)
  - Intestinal perforation [Recovered/Resolved]
  - Lupus-like syndrome [Recovered/Resolved]
  - Dyspnoea [Recovered/Resolved]
  - Oedema peripheral [Recovered/Resolved]
  - Abdominal adhesions [Not Recovered/Not Resolved]
  - Colonic stenosis [Not Recovered/Not Resolved]
  - Intestinal stenosis [Recovered/Resolved]
